FAERS Safety Report 6510096-9 (Version None)
Quarter: 2009Q4

REPORT INFORMATION
  Report Type: 
  Country: None (occurrence: None)
  Receive Date: 20091222
  Receipt Date: 20090923
  Transmission Date: 20100525
  Serious: No
  Sender: FDA-Public Use
  Company Number: US-BAUSCH-2009BL004813

PATIENT
  Age: 79 Year
  Sex: Male
  Weight: 86 kg

DRUGS (1)
  1. ALAWAY [Suspect]
     Indication: EYE PRURITUS
     Route: 047
     Dates: start: 20090817, end: 20090922

REACTIONS (3)
  - DRUG INEFFECTIVE [None]
  - EYE IRRITATION [None]
  - INSTILLATION SITE IRRITATION [None]
